FAERS Safety Report 10242077 (Version 1)
Quarter: 2014Q2

REPORT INFORMATION
  Report Type: Spontaneous
  Country: IT (occurrence: IT)
  Receive Date: 20140617
  Receipt Date: 20140617
  Transmission Date: 20141212
  Serious: Yes (Other)
  Sender: FDA-Public Use
  Company Number: IT-GE HEALTHCARE MEDICAL DIAGNOSTICS-VISP-PR-1406S-0265

PATIENT
  Age: 82 Year
  Sex: Male

DRUGS (2)
  1. VISIPAQUE [Suspect]
     Indication: PRODUCT USED FOR UNKNOWN INDICATION
     Route: 042
     Dates: start: 20140529, end: 20140529
  2. VISIPAQUE [Suspect]
     Indication: DIAGNOSTIC PROCEDURE

REACTIONS (4)
  - Cough [Recovering/Resolving]
  - Erythema multiforme [Recovering/Resolving]
  - Hypotension [Recovering/Resolving]
  - Vomiting [Recovering/Resolving]
